FAERS Safety Report 15035337 (Version 3)
Quarter: 2018Q3

REPORT INFORMATION
  Report Type: Spontaneous
  Country: CO (occurrence: CO)
  Receive Date: 20180620
  Receipt Date: 20180808
  Transmission Date: 20181010
  Serious: Yes (Hospitalization, Other)
  Sender: FDA-Public Use
  Company Number: CO-ROCHE-2142634

PATIENT
  Sex: Female

DRUGS (4)
  1. DEFLAZACORT [Concomitant]
     Active Substance: DEFLAZACORT
     Indication: PREMEDICATION
  2. MABTHERA [Suspect]
     Active Substance: RITUXIMAB
     Indication: RHEUMATOID ARTHRITIS
     Route: 042
     Dates: start: 2008, end: 201804
  3. METHYLPREDNISOLONE. [Concomitant]
     Active Substance: METHYLPREDNISOLONE
     Indication: PREMEDICATION
  4. ACICLOVIR [Concomitant]
     Active Substance: ACYCLOVIR

REACTIONS (10)
  - Vomiting [Recovered/Resolved]
  - Food poisoning [Recovered/Resolved]
  - Hypovolaemic shock [Recovered/Resolved]
  - Ketoacidosis [Recovered/Resolved]
  - Abdominal pain [Recovered/Resolved]
  - Pancreatitis acute [Recovered/Resolved]
  - Dehydration [Recovered/Resolved]
  - Biliary fibrosis [Unknown]
  - Diarrhoea [Recovered/Resolved]
  - Jaundice [Recovered/Resolved]
